FAERS Safety Report 20964212 (Version 21)
Quarter: 2024Q1

REPORT INFORMATION
  Report Type: Report from Study
  Country: CO (occurrence: CO)
  Receive Date: 20220615
  Receipt Date: 20240319
  Transmission Date: 20240410
  Serious: Yes (Hospitalization, Other)
  Sender: FDA-Public Use
  Company Number: CO-TAKEDA-2022TUS012526

PATIENT
  Age: 38 Year
  Sex: Female
  Weight: 68.8 kg

DRUGS (6)
  1. ICATIBANT [Suspect]
     Active Substance: ICATIBANT ACETATE
     Indication: Hereditary angioedema
     Dosage: UNK
     Route: 058
     Dates: start: 20191009
  2. ICATIBANT [Suspect]
     Active Substance: ICATIBANT ACETATE
     Indication: Hereditary angioedema
     Dosage: UNK
     Route: 058
     Dates: start: 20191009
  3. ICATIBANT [Suspect]
     Active Substance: ICATIBANT ACETATE
     Dosage: 30 MILLIGRAM
     Route: 058
  4. ICATIBANT [Suspect]
     Active Substance: ICATIBANT ACETATE
     Dosage: 30 MILLIGRAM
     Route: 058
  5. ICATIBANT [Suspect]
     Active Substance: ICATIBANT ACETATE
     Dosage: 1 DOSAGE FORM
     Route: 058
  6. ICATIBANT [Suspect]
     Active Substance: ICATIBANT ACETATE
     Dosage: 1 DOSAGE FORM
     Route: 058

REACTIONS (18)
  - Lymphadenitis [Unknown]
  - Bacterial sepsis [Unknown]
  - COVID-19 [Recovering/Resolving]
  - Discouragement [Unknown]
  - Memory impairment [Unknown]
  - Anxiety [Unknown]
  - Stress [Unknown]
  - Decreased appetite [Unknown]
  - Depressed mood [Unknown]
  - Disturbance in attention [Unknown]
  - Frustration tolerance decreased [Unknown]
  - Weight increased [Unknown]
  - Body height increased [Unknown]
  - Asthenia [Unknown]
  - Pain [Unknown]
  - Rash pruritic [Recovering/Resolving]
  - Pyrexia [Unknown]
  - Product prescribing error [Unknown]

NARRATIVE: CASE EVENT DATE: 20220222
